FAERS Safety Report 12497133 (Version 2)
Quarter: 2016Q3

REPORT INFORMATION
  Report Type: Spontaneous
  Country: US (occurrence: US)
  Receive Date: 20160624
  Receipt Date: 20160707
  Transmission Date: 20161109
  Serious: Yes (Hospitalization)
  Sender: FDA-Public Use
  Company Number: US-AMNEAL PHARMACEUTICALS-2016AMN00283

PATIENT
  Sex: Female
  Weight: 68.27 kg

DRUGS (2)
  1. SPIRONOLACTONE. [Suspect]
     Active Substance: SPIRONOLACTONE
     Indication: ACNE
     Dosage: 50MG, TWO TIMES A DAY
     Dates: start: 201601, end: 20160226
  2. SPIRONOLACTONE. [Suspect]
     Active Substance: SPIRONOLACTONE
     Dosage: 25MG, TWO TIMES A DAY
     Route: 048
     Dates: start: 201511, end: 201601

REACTIONS (2)
  - Major depression [Not Recovered/Not Resolved]
  - Suicidal ideation [Not Recovered/Not Resolved]
